FAERS Safety Report 21627745 (Version 1)
Quarter: 2022Q4

REPORT INFORMATION
  Report Type: Spontaneous
  Country: US (occurrence: US)
  Receive Date: 20221122
  Receipt Date: 20221122
  Transmission Date: 20230113
  Serious: No
  Sender: FDA-Public Use
  Company Number: US-BRISTOL-MYERS SQUIBB COMPANY-2022-141476

PATIENT
  Age: 8 Year
  Sex: Female

DRUGS (1)
  1. ORENCIA [Suspect]
     Active Substance: ABATACEPT
     Indication: Juvenile idiopathic arthritis
     Dosage: STRENGTH - 50MG/0.4ML?DOSE - 50MG/0.4ML
     Route: 058
     Dates: start: 202104

REACTIONS (1)
  - Drug ineffective [Unknown]
